FAERS Safety Report 24347181 (Version 1)
Quarter: 2024Q3

REPORT INFORMATION
  Report Type: Spontaneous
  Country: DE (occurrence: DE)
  Receive Date: 20240921
  Receipt Date: 20240921
  Transmission Date: 20241016
  Serious: Yes (Other)
  Sender: TEVA
  Company Number: DE-TEVA-VS-3241420

PATIENT

DRUGS (1)
  1. CIPROFLOXACIN [Suspect]
     Active Substance: CIPROFLOXACIN
     Indication: Product used for unknown indication
     Dosage: RATIOPHARM 500 MG FILMTABLETTEN
     Route: 065

REACTIONS (1)
  - Polyneuropathy [Unknown]
